FAERS Safety Report 24755003 (Version 1)
Quarter: 2024Q4

REPORT INFORMATION
  Report Type: Spontaneous
  Country: AU (occurrence: AU)
  Receive Date: 20241219
  Receipt Date: 20241219
  Transmission Date: 20250114
  Serious: Yes (Other)
  Sender: AMGEN
  Company Number: AU-AMGEN-AUSSP2024247087

PATIENT

DRUGS (1)
  1. ADALIMUMAB [Suspect]
     Active Substance: ADALIMUMAB
     Indication: Rheumatoid arthritis
     Dosage: UNK
     Route: 065

REACTIONS (13)
  - Systemic infection [Unknown]
  - Osteomyelitis [Unknown]
  - Streptococcal infection [Unknown]
  - Gastrointestinal infection [Unknown]
  - Respiratory tract infection [Unknown]
  - Skin infection [Unknown]
  - Urinary tract infection [Unknown]
  - Eye infection [Unknown]
  - Arthritis infective [Unknown]
  - Haemophilus infection [Unknown]
  - Escherichia infection [Unknown]
  - Influenza [Unknown]
  - Campylobacter infection [Unknown]
